FAERS Safety Report 5477031-6 (Version None)
Quarter: 2007Q3

REPORT INFORMATION
  Report Type: 
  Country: None (occurrence: None)
  Receive Date: 20070831
  Receipt Date: 20070618
  Transmission Date: 20080115
  Serious: No
  Sender: FDA-Public Use
  Company Number: US-JNJFOC-20070502142

PATIENT
  Age: 67 Year
  Sex: Female
  Weight: 77.1115 kg

DRUGS (11)
  1. DACOGEN [Suspect]
     Indication: MYELODYSPLASTIC SYNDROME
     Dosage: 32 MG, 1 IN 1 DAY, INTRAVENOUS, 38 MG, INTRAVENOUS
     Route: 042
     Dates: start: 20070129, end: 20070202
  2. DACOGEN [Suspect]
     Indication: MYELODYSPLASTIC SYNDROME
     Dosage: 32 MG, 1 IN 1 DAY, INTRAVENOUS, 38 MG, INTRAVENOUS
     Route: 042
     Dates: start: 20070312, end: 20070316
  3. DACOGEN [Suspect]
     Indication: MYELODYSPLASTIC SYNDROME
     Dosage: 32 MG, 1 IN 1 DAY, INTRAVENOUS, 38 MG, INTRAVENOUS
     Route: 042
     Dates: start: 20070409, end: 20070413
  4. DACOGEN [Suspect]
     Indication: MYELODYSPLASTIC SYNDROME
     Dosage: 32 MG, 1 IN 1 DAY, INTRAVENOUS, 38 MG, INTRAVENOUS
     Route: 042
     Dates: start: 20070507, end: 20070511
  5. LITHIUM CARBONATE [Concomitant]
  6. SYNTHROID [Concomitant]
  7. LASIX [Concomitant]
  8. ZESTRIL [Concomitant]
  9. ABILIFY (ARIPRAZOLE) [Concomitant]
  10. ENABLEX (ALL OTHER THERAPEUTIC PRODUCTS) [Concomitant]
  11. LEXAPRO [Concomitant]

REACTIONS (3)
  - OEDEMA PERIPHERAL [None]
  - PAIN IN EXTREMITY [None]
  - RASH [None]
